FAERS Safety Report 5584608-6 (Version None)
Quarter: 2008Q1

REPORT INFORMATION
  Report Type: 
  Country: None (occurrence: None)
  Receive Date: 20080103
  Receipt Date: 20071224
  Transmission Date: 20080703
  Serious: Yes (Death)
  Sender: FDA-Public Use
  Company Number: 114-C5013-07060567

PATIENT
  Age: 48 Year
  Sex: Female

DRUGS (5)
  1. CC-5013 (LEANALIDOMIDE) (CAPSULES) [Suspect]
     Indication: MULTIPLE MYELOMA
     Dosage: 25 MG, 1 IN 1 D, ORAL
     Route: 048
     Dates: start: 20070531, end: 20070101
  2. CLARITHROMYCIN [Concomitant]
  3. DEXAMETHASONE TAB [Concomitant]
  4. FLUCONAZOLE [Concomitant]
  5. ACETYLSALICYLIC ACID SRT [Concomitant]

REACTIONS (18)
  - ADENOMYOSIS [None]
  - CARDIAC ASTHMA [None]
  - CARDIAC MURMUR [None]
  - CARDIOGENIC SHOCK [None]
  - EROSIVE OESOPHAGITIS [None]
  - GASTRITIS EROSIVE [None]
  - GINGIVAL BLEEDING [None]
  - HEPATIC HAEMORRHAGE [None]
  - HYPOTENSION [None]
  - JAUNDICE [None]
  - LEIOMYOMA [None]
  - NEPHRITIS INTERSTITIAL [None]
  - PALPITATIONS [None]
  - PNEUMONIA [None]
  - PULMONARY HAEMORRHAGE [None]
  - SEPSIS [None]
  - SEPTIC SHOCK [None]
  - SPLENIC HAEMORRHAGE [None]
